FAERS Safety Report 9729898 (Version 2)
Quarter: 2013Q4

REPORT INFORMATION
  Report Type: Other
  Country: CA (occurrence: CA)
  Receive Date: 20131204
  Receipt Date: 20131204
  Transmission Date: 20140711
  Serious: Yes (Hospitalization)
  Sender: FDA-Public Use
  Company Number: CA-ACORDA-ACO_38129_2013

PATIENT
  Age: 59 Year
  Sex: Female

DRUGS (2)
  1. FAMPYRA [Suspect]
     Indication: GAIT DISTURBANCE
     Dosage: 10 MG, BID
     Route: 048
     Dates: start: 20130502
  2. AVONEX [Concomitant]
     Indication: PRODUCT USED FOR UNKNOWN INDICATION
     Dosage: UNK

REACTIONS (2)
  - Hip fracture [Unknown]
  - Fall [Recovered/Resolved]
